FAERS Safety Report 9286945 (Version 1)
Quarter: 2013Q2

REPORT INFORMATION
  Report Type: Spontaneous
  Country: US (occurrence: None)
  Receive Date: 20130508
  Receipt Date: 20130508
  Transmission Date: 20140414
  Serious: Yes (Other)
  Sender: FDA-Public Use
  Company Number: US-1198043

PATIENT
  Age: 76 Year
  Sex: Male

DRUGS (1)
  1. PREDNISOLONE [Suspect]
     Route: 047
     Dates: start: 201304

REACTIONS (1)
  - Dyspnoea [None]
